FAERS Safety Report 4914663-5 (Version None)
Quarter: 2006Q1

REPORT INFORMATION
  Report Type: 
  Country: None (occurrence: None)
  Receive Date: 20060216
  Receipt Date: 20060124
  Transmission Date: 20060701
  Serious: Yes (Hospitalization)
  Sender: FDA-Public Use
  Company Number: JP-MERCK-0601USA03258

PATIENT
  Age: 78 Year
  Sex: Female

DRUGS (9)
  1. SINGULAIR [Suspect]
     Indication: ASTHMA
     Route: 048
     Dates: start: 20050826, end: 20050917
  2. SINGULAIR [Suspect]
     Route: 048
     Dates: start: 20050818, end: 20050821
  3. [THERAPY UNSPECIFIED] [Concomitant]
     Route: 051
  4. QVAR 40 [Concomitant]
     Route: 055
  5. SEREVENT [Concomitant]
     Route: 055
  6. GASTER [Concomitant]
     Route: 065
  7. MUCOSOLVAN [Concomitant]
     Route: 048
  8. MUCOSTA [Concomitant]
     Route: 048
  9. POLARAMINE [Concomitant]
     Route: 065

REACTIONS (1)
  - ALLERGIC GRANULOMATOUS ANGIITIS [None]
